FAERS Safety Report 8592101-1 (Version None)
Quarter: 2012Q3

REPORT INFORMATION
  Report Type: 
  Country: None (occurrence: None)
  Receive Date: 20120814
  Receipt Date: 20120807
  Transmission Date: 20120928
  Serious: Yes (Hospitalization)
  Sender: FDA-Public Use
  Company Number: FR-SANOFI-AVENTIS-2012SA056322

PATIENT
  Age: 80 Year
  Sex: Female
  Weight: 97 kg

DRUGS (8)
  1. LEVOTHYROXINE SODIUM [Concomitant]
     Route: 048
  2. PREVISCAN [Concomitant]
     Route: 048
  3. VICTOZA [Suspect]
     Indication: TYPE 2 DIABETES MELLITUS
     Route: 058
     Dates: start: 20110901, end: 20120519
  4. ZOLPIDEM TARTRATE [Concomitant]
     Route: 048
  5. LASIX [Suspect]
     Route: 048
     Dates: end: 20120519
  6. GLUCOPHAGE [Suspect]
     Indication: TYPE 2 DIABETES MELLITUS
     Route: 048
     Dates: end: 20120519
  7. POLYETHYLENE GLYCOL [Concomitant]
     Route: 048
  8. ATARAX [Concomitant]
     Route: 048

REACTIONS (1)
  - RENAL FAILURE ACUTE [None]
